FAERS Safety Report 8112758-9 (Version None)
Quarter: 2012Q1

REPORT INFORMATION
  Report Type: 
  Country: None (occurrence: None)
  Receive Date: 20120203
  Receipt Date: 20120125
  Transmission Date: 20120608
  Serious: Yes (Other)
  Sender: FDA-Public Use
  Company Number: JP-EISAI INC-E2020-10260-SPO-JP

PATIENT
  Sex: Female

DRUGS (1)
  1. ARICEPT [Suspect]
     Indication: FRONTOTEMPORAL DEMENTIA
     Dosage: UNKNOWN
     Route: 048

REACTIONS (1)
  - PHYSICAL ASSAULT [None]
